FAERS Safety Report 7200942-8 (Version None)
Quarter: 2010Q4

REPORT INFORMATION
  Report Type: 
  Country: None (occurrence: None)
  Receive Date: 20101228
  Receipt Date: 20101011
  Transmission Date: 20110411
  Serious: No
  Sender: FDA-Public Use
  Company Number: US-AMGEN-KDL444282

PATIENT

DRUGS (1)
  1. ENBREL [Suspect]
     Indication: RHEUMATOID ARTHRITIS
     Dosage: 50 MG, QWK
     Route: 058
     Dates: start: 20090401

REACTIONS (5)
  - HEAD INJURY [None]
  - NECK PAIN [None]
  - PYREXIA [None]
  - SINUS CONGESTION [None]
  - UPPER-AIRWAY COUGH SYNDROME [None]
